FAERS Safety Report 4944118-3 (Version None)
Quarter: 2006Q1

REPORT INFORMATION
  Report Type: 
  Country: None (occurrence: None)
  Receive Date: 20060309
  Receipt Date: 20060221
  Transmission Date: 20060701
  Serious: Yes (Hospitalization)
  Sender: FDA-Public Use
  Company Number: 2006-00434

PATIENT
  Age: 68 Year
  Sex: Male

DRUGS (13)
  1. VELCADE [Suspect]
     Indication: MULTIPLE MYELOMA
     Dosage: 1.00 MG/M2, INTRAVENOUS
     Route: 042
     Dates: start: 20050614, end: 20050624
  2. SCIO-469 () CAPSULE [Suspect]
     Indication: MULTIPLE MYELOMA
     Dosage: 60.00 MBQ, TID, ORAL
     Route: 048
     Dates: start: 20050513, end: 20050707
  3. CYMBALTA [Concomitant]
  4. LISINOPRIL [Concomitant]
  5. FOLIC ACID [Concomitant]
  6. MULTIVITAMINS (ERGOCALCIFEROL, PANTHENOL, NICOTINAMIDE, RIBOFLAVIN, TH [Concomitant]
  7. CALCIUM GLUCONATE [Concomitant]
  8. VITAMIN B COMPLEX CAP [Concomitant]
  9. HYDROCHLOROTHIAZIDE [Concomitant]
  10. BACTRIM [Concomitant]
  11. LAXATIVES [Concomitant]
  12. RESTORIL [Concomitant]
  13. FAMVIR [Concomitant]

REACTIONS (6)
  - ANKLE FRACTURE [None]
  - DISEASE PROGRESSION [None]
  - FALL [None]
  - HYPOTENSION [None]
  - SINUS BRADYCARDIA [None]
  - SYNCOPE [None]
